FAERS Safety Report 11398383 (Version 1)
Quarter: 2015Q3

REPORT INFORMATION
  Report Type: Spontaneous
  Country: ES (occurrence: ES)
  Receive Date: 20150820
  Receipt Date: 20150820
  Transmission Date: 20151125
  Serious: Yes (Hospitalization)
  Sender: FDA-Public Use
  Company Number: ES-AUROBINDO-AUR-APL-2015-07326

PATIENT

DRUGS (1)
  1. RISPERIDONE ORAL SOLUTION [Suspect]
     Active Substance: RISPERIDONE
     Indication: PSYCHOTIC DISORDER
     Dosage: UNK
     Route: 065

REACTIONS (9)
  - Negativism [Recovered/Resolved]
  - Condition aggravated [Recovered/Resolved]
  - Drug level below therapeutic [Recovered/Resolved]
  - Bradykinesia [Recovered/Resolved]
  - Caesarean section [None]
  - Akathisia [Recovered/Resolved]
  - Muscle rigidity [Recovered/Resolved]
  - Masked facies [Recovered/Resolved]
  - Maternal exposure during pregnancy [None]
